FAERS Safety Report 6273796-4 (Version None)
Quarter: 2009Q3

REPORT INFORMATION
  Report Type: 
  Country: None (occurrence: None)
  Receive Date: 20090720
  Receipt Date: 20090710
  Transmission Date: 20100115
  Serious: Yes (Hospitalization)
  Sender: FDA-Public Use
  Company Number: B0583360A

PATIENT
  Sex: Female

DRUGS (8)
  1. ALKERAN [Suspect]
     Dosage: 12MG SEE DOSAGE TEXT
     Route: 048
     Dates: start: 20090308, end: 20090312
  2. REVLIMID [Suspect]
     Dosage: 10MG PER DAY
     Route: 048
  3. SOTALOL [Suspect]
     Dosage: 80MG PER DAY
     Route: 048
  4. NEXIUM [Suspect]
     Dosage: 20MG PER DAY
     Route: 048
  5. DOLIPRANE [Suspect]
     Dosage: 1G THREE TIMES PER DAY
     Route: 048
  6. LASILIX FAIBLE [Suspect]
     Dosage: 20MG PER DAY
     Route: 048
  7. TRIFLUCAN [Suspect]
     Dosage: 100MG PER DAY
     Route: 048
     Dates: end: 20090315
  8. CORTANCYL [Suspect]
     Dosage: 20MG SEE DOSAGE TEXT
     Route: 048
     Dates: start: 20090308, end: 20090312

REACTIONS (7)
  - ANAEMIA [None]
  - DERMO-HYPODERMITIS [None]
  - ECCHYMOSIS [None]
  - NEUTROPENIA [None]
  - PETECHIAE [None]
  - PYREXIA [None]
  - RASH ERYTHEMATOUS [None]
